FAERS Safety Report 9105691 (Version 1)
Quarter: 2013Q1

REPORT INFORMATION
  Report Type: Spontaneous
  Country: US (occurrence: US)
  Receive Date: 20130220
  Receipt Date: 20130220
  Transmission Date: 20140127
  Serious: No
  Sender: FDA-Public Use
  Company Number: US-ASTRAZENECA-2013SE09138

PATIENT
  Age: 55 Year
  Sex: Male
  Weight: 98.9 kg

DRUGS (4)
  1. NEXIUM [Suspect]
     Indication: GASTROOESOPHAGEAL REFLUX DISEASE
     Route: 048
     Dates: start: 2001
  2. NEXIUM [Suspect]
     Indication: DYSPEPSIA
     Route: 048
     Dates: start: 2001
  3. NEFAZODONE [Concomitant]
     Indication: DEPRESSION
  4. ALPRAZOLAM [Concomitant]
     Indication: ANXIETY

REACTIONS (3)
  - Dyspepsia [Unknown]
  - Vomiting [Unknown]
  - Drug dose omission [Unknown]
